FAERS Safety Report 7746345-9 (Version None)
Quarter: 2011Q3

REPORT INFORMATION
  Report Type: 
  Country: None (occurrence: None)
  Receive Date: 20110912
  Receipt Date: 20110912
  Transmission Date: 20111222
  Serious: No
  Sender: FDA-Public Use
  Company Number: None

PATIENT
  Age: 48 Year
  Sex: Male

DRUGS (1)
  1. REBIF [Suspect]
     Dosage: 44MCG L/W SQ
     Route: 058
     Dates: start: 20110720, end: 20110901

REACTIONS (2)
  - ABASIA [None]
  - MUSCULAR WEAKNESS [None]
